FAERS Safety Report 11062876 (Version 1)
Quarter: 2015Q2

REPORT INFORMATION
  Report Type: Spontaneous
  Country: FR (occurrence: FR)
  Receive Date: 20150424
  Receipt Date: 20150424
  Transmission Date: 20150821
  Serious: Yes (Other)
  Sender: FDA-Public Use
  Company Number: FR-PFIZER INC-2015132174

PATIENT
  Age: 60 Year
  Sex: Female

DRUGS (5)
  1. SORIATANE [Concomitant]
     Active Substance: ACITRETIN
  2. LEVOTHYROX [Concomitant]
     Active Substance: LEVOTHYROXINE
  3. KARDEGIC [Concomitant]
     Active Substance: ASPIRIN LYSINE
  4. BOSULIF [Suspect]
     Active Substance: BOSUTINIB MONOHYDRATE
     Indication: MYELOPROLIFERATIVE DISORDER
     Dosage: 250 MG, 1X/DAY
     Route: 048
     Dates: start: 201410, end: 2014
  5. COVERSYL [Concomitant]
     Active Substance: PERINDOPRIL

REACTIONS (5)
  - Erythema [Recovered/Resolved]
  - Diarrhoea [Recovered/Resolved]
  - Vomiting [Recovered/Resolved]
  - Face oedema [Recovered/Resolved]
  - Product use issue [Unknown]

NARRATIVE: CASE EVENT DATE: 201410
